FAERS Safety Report 8860295 (Version 2)
Quarter: 2013Q1

REPORT INFORMATION
  Report Type: Spontaneous
  Country: US (occurrence: US)
  Receive Date: 20121025
  Receipt Date: 20130327
  Transmission Date: 20140127
  Serious: Yes (Hospitalization)
  Sender: FDA-Public Use
  Company Number: US-PFIZER INC-2012263948

PATIENT
  Age: 65 Year
  Sex: Male

DRUGS (7)
  1. SUTENT [Suspect]
     Indication: RENAL CANCER
     Dosage: 50 MG, UNK
     Dates: start: 20121003
  2. FERROUS SULFATE [Concomitant]
     Dosage: UNK
  3. GLYBURIDE [Concomitant]
     Dosage: UNK
  4. JANUVIA [Concomitant]
     Dosage: UNK
  5. LIPITOR [Concomitant]
     Dosage: UNK
  6. HYDROCHLOROTHIAZIDE/TRIAMTERENE [Concomitant]
     Dosage: UNK
  7. LISINOPRIL [Concomitant]

REACTIONS (3)
  - Dysphagia [Unknown]
  - Vomiting [Unknown]
  - Diarrhoea [Unknown]
